FAERS Safety Report 17166844 (Version 1)
Quarter: 2019Q4

REPORT INFORMATION
  Report Type: Spontaneous
  Country: US (occurrence: US)
  Receive Date: 20191217
  Receipt Date: 20191217
  Transmission Date: 20200122
  Serious: Yes (Other)
  Sender: FDA-Public Use
  Company Number: US-BAUSCH-BL-2019-055527

PATIENT
  Sex: Female
  Weight: 45.4 kg

DRUGS (9)
  1. DIAZEPAM. [Suspect]
     Active Substance: DIAZEPAM
     Indication: SEIZURE
     Dosage: TAKEN HALF A SYRINGE, START DATE: TAKING FROM SEVERAL YEARS NOW.
     Route: 065
  2. VITAMIN D3 [Concomitant]
     Active Substance: CHOLECALCIFEROL
     Indication: PRODUCT USED FOR UNKNOWN INDICATION
  3. FENTANYL. [Concomitant]
     Active Substance: FENTANYL
     Indication: PRODUCT USED FOR UNKNOWN INDICATION
     Dosage: PATCH
  4. CALCIUM [Concomitant]
     Active Substance: CALCIUM
     Indication: PRODUCT USED FOR UNKNOWN INDICATION
  5. MAXALT [Concomitant]
     Active Substance: RIZATRIPTAN BENZOATE
     Indication: PRODUCT USED FOR UNKNOWN INDICATION
  6. POTIGA [Concomitant]
     Active Substance: EZOGABINE
     Indication: PRODUCT USED FOR UNKNOWN INDICATION
  7. LORAZEPAM. [Concomitant]
     Active Substance: LORAZEPAM
     Indication: PRODUCT USED FOR UNKNOWN INDICATION
     Dosage: 1-2 MG
  8. ONFI [Concomitant]
     Active Substance: CLOBAZAM
     Indication: PRODUCT USED FOR UNKNOWN INDICATION
  9. MODAFINIL. [Concomitant]
     Active Substance: MODAFINIL
     Indication: SOMNOLENCE

REACTIONS (5)
  - Joint dislocation [Unknown]
  - Dehydration [Unknown]
  - Incorrect dose administered [Unknown]
  - Malnutrition [Unknown]
  - Foot fracture [Unknown]

NARRATIVE: CASE EVENT DATE: 2018
